FAERS Safety Report 25530899 (Version 1)
Quarter: 2025Q3

REPORT INFORMATION
  Report Type: Spontaneous
  Country: IN (occurrence: IN)
  Receive Date: 20250708
  Receipt Date: 20250708
  Transmission Date: 20251021
  Serious: Yes (Hospitalization)
  Sender: NOVARTIS
  Company Number: IN-002147023-NVSC2025IN106353

PATIENT

DRUGS (3)
  1. OCTREOTIDE [Suspect]
     Active Substance: OCTREOTIDE
     Indication: Product used for unknown indication
     Route: 058
  2. OCTREOTIDE [Suspect]
     Active Substance: OCTREOTIDE
     Route: 058
  3. OCTREOTIDE [Suspect]
     Active Substance: OCTREOTIDE

REACTIONS (1)
  - Haemorrhage [Unknown]
